FAERS Safety Report 9924019 (Version 1)
Quarter: 2014Q1

REPORT INFORMATION
  Report Type: Spontaneous
  Country: US (occurrence: US)
  Receive Date: 20140225
  Receipt Date: 20140225
  Transmission Date: 20141002
  Serious: No
  Sender: FDA-Public Use
  Company Number: US-TEVA-462834USA

PATIENT
  Age: 49 Year
  Sex: Male

DRUGS (1)
  1. QVAR [Suspect]
     Indication: NASOPHARYNGITIS
     Dates: start: 201401, end: 201401

REACTIONS (4)
  - Anxiety [Recovered/Resolved]
  - Hyperhidrosis [Recovered/Resolved]
  - Dyspnoea [Recovered/Resolved]
  - Insomnia [Recovered/Resolved]
